FAERS Safety Report 5389054-6 (Version None)
Quarter: 2007Q3

REPORT INFORMATION
  Report Type: 
  Country: None (occurrence: None)
  Receive Date: 20070717
  Receipt Date: 20070713
  Transmission Date: 20080115
  Serious: Yes (Hospitalization)
  Sender: FDA-Public Use
  Company Number: CA-BAYER-199906329GDS

PATIENT
  Age: 48 Year
  Sex: Female

DRUGS (1)
  1. ASPIRIN [Suspect]
     Indication: ARTHRALGIA
     Dosage: AS USED: 3.25 G  UNIT DOSE: 325 MG
     Route: 048

REACTIONS (9)
  - CONFUSIONAL STATE [None]
  - DELIRIUM [None]
  - DRUG LEVEL ABOVE THERAPEUTIC [None]
  - GLASGOW COMA SCALE ABNORMAL [None]
  - MALAISE [None]
  - SPEECH DISORDER [None]
  - STUPOR [None]
  - THERAPEUTIC AGENT TOXICITY [None]
  - TREMOR [None]
